FAERS Safety Report 5047964-3 (Version None)
Quarter: 2006Q3

REPORT INFORMATION
  Report Type: 
  Country: None (occurrence: None)
  Receive Date: 20060711
  Receipt Date: 20021227
  Transmission Date: 20061208
  Serious: Yes (Death, Other)
  Sender: FDA-Public Use
  Company Number: DK-BRISTOL-MYERS SQUIBB COMPANY-13353115

PATIENT
  Age: 45 Year
  Sex: Female

DRUGS (2)
  1. STAVUDINE [Suspect]
  2. LAMIVUDINE [Suspect]

REACTIONS (2)
  - DEATH [None]
  - PANCREATITIS [None]
